FAERS Safety Report 7794220-6 (Version None)
Quarter: 2011Q4

REPORT INFORMATION
  Report Type: 
  Country: None (occurrence: None)
  Receive Date: 20111004
  Receipt Date: 20110919
  Transmission Date: 20120403
  Serious: Yes (Other)
  Sender: FDA-Public Use
  Company Number: PL-TYCO HEALTHCARE/MALLINCKRODT-T201101815

PATIENT
  Age: 50 Year

DRUGS (1)
  1. SODIUM IODIDE I-131 SOLUTION [Suspect]
     Indication: HYPERTHYROIDISM
     Dosage: 605.0 +/- 89.0 MBQ

REACTIONS (1)
  - EXOPHTHALMOS [None]
